FAERS Safety Report 9892366 (Version 2)
Quarter: 2014Q1

REPORT INFORMATION
  Report Type: Report from Study
  Country: US (occurrence: US)
  Receive Date: 20140212
  Receipt Date: 20140220
  Transmission Date: 20141002
  Serious: Yes (Hospitalization)
  Sender: FDA-Public Use
  Company Number: US-ACTELION-A-US2014-94774

PATIENT
  Age: 77 Year
  Sex: Female

DRUGS (3)
  1. VENTAVIS [Suspect]
     Indication: PULMONARY ARTERIAL HYPERTENSION
     Dosage: UNK
     Route: 055
  2. OPSUMIT [Suspect]
     Dosage: 10 MG, QD
     Route: 048
  3. SILDENAFIL [Concomitant]

REACTIONS (2)
  - Pulmonary arterial hypertension [Unknown]
  - Lung disorder [Unknown]
